FAERS Safety Report 19068018 (Version 2)
Quarter: 2021Q1

REPORT INFORMATION
  Report Type: Spontaneous
  Country: US (occurrence: US)
  Receive Date: 20210329
  Receipt Date: 20210330
  Transmission Date: 20210420
  Serious: Yes (Death, Hospitalization, Other)
  Sender: FDA-Public Use
  Company Number: US-CELGENEUS-USA-20210306831

PATIENT
  Age: 59 Year
  Sex: Female

DRUGS (1)
  1. POMALYST [Suspect]
     Active Substance: POMALIDOMIDE
     Indication: PLASMA CELL MYELOMA
     Dosage: 4 MILLIGRAM
     Route: 048
     Dates: start: 20201231, end: 20210322

REACTIONS (10)
  - Death [Fatal]
  - Arthralgia [Unknown]
  - Neck pain [Unknown]
  - Headache [Unknown]
  - Fall [Unknown]
  - Plasmacytoma [Unknown]
  - Humerus fracture [Unknown]
  - Pain [Unknown]
  - Pneumonia [Unknown]
  - Plasma cell myeloma [Unknown]

NARRATIVE: CASE EVENT DATE: 20210322
